FAERS Safety Report 24405496 (Version 1)
Quarter: 2024Q4

REPORT INFORMATION
  Report Type: Spontaneous
  Country: KR (occurrence: KR)
  Receive Date: 20241007
  Receipt Date: 20241007
  Transmission Date: 20250115
  Serious: Yes (Other)
  Sender: GUERBET
  Company Number: KR-GUERBET / KOREA-KR-20240063

PATIENT
  Age: 74 Year
  Sex: Male

DRUGS (3)
  1. LIPIODOL [Suspect]
     Active Substance: ETHIODIZED OIL
     Indication: Transcatheter arterial chemoembolisation
     Dosage: A MIXTURE OF 2 ML OF LIPIODOL WITH 10 MG OF DOXORUBICIN (ADRIAMYCIN) AND 150 TO 350 UM SIZED GELATIN
     Route: 013
  2. ADRIAMYCIN [Suspect]
     Active Substance: DOXORUBICIN HYDROCHLORIDE
     Indication: Transcatheter arterial chemoembolisation
     Dosage: A MIXTURE OF 2 ML OF LIPIODOL WITH 10 MG OF DOXORUBICIN (ADRIAMYCIN) AND 150 TO 350 UM SIZED GELATIN
     Route: 013
  3. DEVICE\GELATIN [Suspect]
     Active Substance: DEVICE\GELATIN
     Indication: Transcatheter arterial chemoembolisation
     Dosage: A MIXTURE OF 2 ML OF LIPIODOL WITH 10 MG OF DOXORUBICIN (ADRIAMYCIN) AND 150 TO 350 UM SIZED GELATIN
     Route: 013

REACTIONS (4)
  - Fistula of small intestine [Unknown]
  - Off label use [Unknown]
  - Pyrexia [Recovered/Resolved]
  - Extravasation [Unknown]
